FAERS Safety Report 16710136 (Version 1)
Quarter: 2019Q3

REPORT INFORMATION
  Report Type: Spontaneous
  Country: GB (occurrence: GB)
  Receive Date: 20190816
  Receipt Date: 20190816
  Transmission Date: 20191004
  Serious: Yes (Other)
  Sender: FDA-Public Use
  Company Number: GB-BAYER-2019-151912

PATIENT
  Age: 30 Year
  Sex: Male
  Weight: 102 kg

DRUGS (2)
  1. CIPROXIN [Suspect]
     Active Substance: CIPROFLOXACIN
     Indication: ABDOMINAL ABSCESS
     Dosage: 1000 MG, QD
     Route: 048
     Dates: start: 20190723, end: 20190726
  2. METRONIDAZOLE. [Concomitant]
     Active Substance: METRONIDAZOLE

REACTIONS (3)
  - Myalgia [Unknown]
  - Musculoskeletal pain [Unknown]
  - Arthralgia [Recovered/Resolved]
